FAERS Safety Report 16042629 (Version 1)
Quarter: 2019Q1

REPORT INFORMATION
  Report Type: Spontaneous
  Country: DE (occurrence: DE)
  Receive Date: 20190306
  Receipt Date: 20190306
  Transmission Date: 20190418
  Serious: No
  Sender: FDA-Public Use
  Company Number: DE-JAZZ-2019-DE-001743

PATIENT

DRUGS (3)
  1. XYREM [Suspect]
     Active Substance: SODIUM OXYBATE
     Indication: PRODUCT USED FOR UNKNOWN INDICATION
     Dosage: 4.5-9 G PER NIGHT, DIVIDED INTO 2 DOSES, EG. 2.25-4.5 G AT BEDTIME, 2.25-4.5 G AFTER 2-4 HOURS
     Route: 048
  2. MODAFINIL. [Concomitant]
     Active Substance: MODAFINIL
  3. METHYLPHENIDATE. [Concomitant]
     Active Substance: METHYLPHENIDATE

REACTIONS (2)
  - Paraesthesia [Unknown]
  - Tremor [Unknown]
